FAERS Safety Report 15677844 (Version 21)
Quarter: 2023Q4

REPORT INFORMATION
  Report Type: Report from Study
  Country: CA (occurrence: CA)
  Receive Date: 20181130
  Receipt Date: 20231124
  Transmission Date: 20240110
  Serious: Yes (Hospitalization, Other)
  Sender: FDA-Public Use
  Company Number: PHHY2012CA019140

PATIENT
  Age: 62 Year
  Sex: Female

DRUGS (10)
  1. SANDOSTATIN LAR DEPOT [Suspect]
     Active Substance: OCTREOTIDE ACETATE
     Indication: Small intestine carcinoma metastatic
     Dosage: 20 MG, QMO (EVERY 4 WEEKS)
     Route: 030
     Dates: start: 20100601
  2. SANDOSTATIN LAR DEPOT [Suspect]
     Active Substance: OCTREOTIDE ACETATE
     Dosage: 30 MG, Q4W
     Route: 030
     Dates: start: 20100608
  3. SANDOSTATIN LAR DEPOT [Suspect]
     Active Substance: OCTREOTIDE ACETATE
     Dosage: 30 MG, QMO (EVERY 4 WEEKS)
     Route: 030
     Dates: start: 20110909
  4. SANDOSTATIN LAR DEPOT [Suspect]
     Active Substance: OCTREOTIDE ACETATE
     Dosage: 30 MG, QMO (EVERY 4 WEEKS)
     Route: 030
  5. BISOPROLOL [Suspect]
     Active Substance: BISOPROLOL\BISOPROLOL FUMARATE
     Indication: Product used for unknown indication
     Dosage: UNK
     Route: 065
  6. MORPHINE SULFATE [Suspect]
     Active Substance: MORPHINE SULFATE
     Indication: Product used for unknown indication
     Dosage: UNK
     Route: 065
  7. ACETAMINOPHEN\TRAMADOL [Concomitant]
     Active Substance: ACETAMINOPHEN\TRAMADOL
     Indication: Product used for unknown indication
     Dosage: UNK
     Route: 065
  8. SYNTHROID [Concomitant]
     Active Substance: LEVOTHYROXINE SODIUM
     Indication: Product used for unknown indication
     Dosage: UNK
     Route: 065
  9. MICARDIS [Concomitant]
     Active Substance: TELMISARTAN
     Indication: Product used for unknown indication
     Dosage: UNK
     Route: 065
  10. IMOVANE [Concomitant]
     Active Substance: ZOPICLONE
     Indication: Product used for unknown indication
     Dosage: UNK, QHS
     Route: 065

REACTIONS (41)
  - Fall [Unknown]
  - Injury [Unknown]
  - Limb injury [Unknown]
  - Blood pressure increased [Unknown]
  - Blood pressure diastolic decreased [Not Recovered/Not Resolved]
  - Blood pressure diastolic increased [Unknown]
  - Muscle spasms [Not Recovered/Not Resolved]
  - Hot flush [Not Recovered/Not Resolved]
  - Back pain [Unknown]
  - Blood pressure systolic increased [Unknown]
  - Bowel movement irregularity [Unknown]
  - Arthralgia [Not Recovered/Not Resolved]
  - Pain in extremity [Unknown]
  - Malaise [Unknown]
  - Limb discomfort [Unknown]
  - Body temperature decreased [Unknown]
  - Lethargy [Unknown]
  - Heart rate decreased [Unknown]
  - Abdominal pain [Unknown]
  - Pruritus [Unknown]
  - Diarrhoea [Unknown]
  - Influenza [Recovered/Resolved]
  - Contusion [Unknown]
  - Drug hypersensitivity [Unknown]
  - Palpitations [Unknown]
  - Swelling [Unknown]
  - Anxiety [Unknown]
  - Weight decreased [Unknown]
  - Injection site pain [Recovered/Resolved]
  - Injection site pain [Unknown]
  - Injection site mass [Recovered/Resolved]
  - Injection site mass [Not Recovered/Not Resolved]
  - Injection site erythema [Recovered/Resolved]
  - Injection site inflammation [Recovered/Resolved]
  - Injection site swelling [Unknown]
  - Injection site warmth [Unknown]
  - Injection site reaction [Unknown]
  - Injection site haematoma [Unknown]
  - Needle issue [Unknown]
  - Incorrect route of product administration [Unknown]
  - Wrong technique in product usage process [Unknown]

NARRATIVE: CASE EVENT DATE: 20111007
